FAERS Safety Report 18484569 (Version 1)
Quarter: 2020Q4

REPORT INFORMATION
  Report Type: Spontaneous
  Country: PT (occurrence: PT)
  Receive Date: 20201110
  Receipt Date: 20201110
  Transmission Date: 20210114
  Serious: Yes (Hospitalization, Other)
  Sender: FDA-Public Use
  Company Number: PT-ACCORD-207864

PATIENT
  Age: 31 Year
  Sex: Female

DRUGS (7)
  1. DARBEPOETIN ALFA [Concomitant]
     Active Substance: DARBEPOETIN ALFA
     Indication: CHRONIC KIDNEY DISEASE
     Dosage: 10 UG, OW
  2. AMLODIPINE [Suspect]
     Active Substance: AMLODIPINE BESYLATE
     Indication: HYPERVOLAEMIA
  3. ACETYLSALICYLIC ACID [Suspect]
     Active Substance: ASPIRIN
     Indication: CHRONIC KIDNEY DISEASE
     Dosage: STRENGTH 100 MG, QD
  4. METHYLDOPA. [Concomitant]
     Active Substance: METHYLDOPA
     Indication: CHRONIC KIDNEY DISEASE
     Dosage: 500 MILLIGRAM, QD
  5. IRON [Concomitant]
     Active Substance: IRON
  6. BETAMETHASONE. [Concomitant]
     Active Substance: BETAMETHASONE
     Dosage: UNK
  7. FOLIC ACID. [Concomitant]
     Active Substance: FOLIC ACID
     Indication: CHRONIC KIDNEY DISEASE
     Dosage: 5 MG, QD

REACTIONS (11)
  - Respiratory failure [Unknown]
  - Hypervolaemia [Unknown]
  - Hyperbilirubinaemia [Unknown]
  - Renal impairment [Unknown]
  - Off label use [Unknown]
  - Maternal exposure during pregnancy [Unknown]
  - Drug-induced liver injury [Unknown]
  - Premature delivery [Unknown]
  - Respiratory tract infection [Unknown]
  - Hepatocellular injury [Unknown]
  - Hypertension [Unknown]

NARRATIVE: CASE EVENT DATE: 201007
